FAERS Safety Report 8346556 (Version 12)
Quarter: 2016Q3

REPORT INFORMATION
  Report Type: Report from Study
  Country: BR (occurrence: BR)
  Receive Date: 20120120
  Receipt Date: 20160829
  Transmission Date: 20161109
  Serious: Yes (Hospitalization, Disabling, Other)
  Sender: FDA-Public Use
  Company Number: BR-ROCHE-789385

PATIENT
  Sex: Female
  Weight: 47 kg

DRUGS (23)
  1. DOMPERIDONE [Concomitant]
     Active Substance: DOMPERIDONE
     Dosage: AS NECESSARY
     Route: 065
  2. TYLENOL [Concomitant]
     Active Substance: ACETAMINOPHEN
     Dosage: PRE-MEDICATION
     Route: 065
     Dates: start: 201102, end: 201102
  3. ANAFRANIL [Concomitant]
     Active Substance: CLOMIPRAMINE HYDROCHLORIDE
     Indication: FIBROMYALGIA
  4. ACTEMRA [Suspect]
     Active Substance: TOCILIZUMAB
     Indication: RHEUMATOID ARTHRITIS
     Route: 042
     Dates: start: 20150316
  5. METHOTREXATE. [Suspect]
     Active Substance: METHOTREXATE
     Indication: PRODUCT USED FOR UNKNOWN INDICATION
     Route: 065
  6. PANTOPRAZOLE [Concomitant]
     Active Substance: PANTOPRAZOLE SODIUM
     Route: 065
  7. RIVOTRIL [Concomitant]
     Active Substance: CLONAZEPAM
     Indication: INSOMNIA
     Route: 065
  8. PREDNISONE. [Concomitant]
     Active Substance: PREDNISONE
     Route: 065
  9. ANAFRANIL [Concomitant]
     Active Substance: CLOMIPRAMINE HYDROCHLORIDE
  10. MABTHERA [Suspect]
     Active Substance: RITUXIMAB
     Indication: RHEUMATOID ARTHRITIS
     Dosage: DOSE RECEIVED ON 05/SEP/2011
     Route: 042
     Dates: start: 20110207, end: 20110919
  11. RANITIDINE. [Concomitant]
     Active Substance: RANITIDINE
     Indication: GASTRIC DISORDER
  12. NOVALGIN [Concomitant]
     Active Substance: METAMIZOLE SODIUM
  13. ANAFRANIL [Concomitant]
     Active Substance: CLOMIPRAMINE HYDROCHLORIDE
     Indication: DEPRESSION
     Route: 065
  14. ROSUVASTATIN. [Concomitant]
     Active Substance: ROSUVASTATIN
  15. ACTEMRA [Suspect]
     Active Substance: TOCILIZUMAB
     Route: 042
     Dates: start: 20150505
  16. MABTHERA [Suspect]
     Active Substance: RITUXIMAB
     Route: 042
  17. MABTHERA [Suspect]
     Active Substance: RITUXIMAB
     Route: 042
  18. DIPYRONE [Concomitant]
     Active Substance: DIPYRONE
     Indication: GASTRITIS
     Route: 065
  19. TRAMAL [Concomitant]
     Active Substance: TRAMADOL
     Indication: PAIN
     Dosage: FREQUENCY: WHEN THE PATIENT FEELS PAIN
     Route: 065
  20. PREDNISONE. [Concomitant]
     Active Substance: PREDNISONE
     Route: 065
  21. PREDNISONE. [Concomitant]
     Active Substance: PREDNISONE
     Route: 065
  22. OMEPRAZOLE. [Concomitant]
     Active Substance: OMEPRAZOLE
     Indication: GASTRIC DISORDER
  23. LISADOR [Concomitant]
     Active Substance: DIPYRONE\PROMETHAZINE HYDROCHLORIDE
     Indication: FIBROMYALGIA
     Route: 065

REACTIONS (33)
  - Urinary tract infection [Unknown]
  - Nephrolithiasis [Not Recovered/Not Resolved]
  - Scar [Not Recovered/Not Resolved]
  - Intervertebral disc protrusion [Unknown]
  - Nasopharyngitis [Unknown]
  - Infection [Not Recovered/Not Resolved]
  - Urinary tract infection [Not Recovered/Not Resolved]
  - Blood cholesterol increased [Not Recovered/Not Resolved]
  - Headache [Not Recovered/Not Resolved]
  - Spinal pain [Not Recovered/Not Resolved]
  - Gastritis [Unknown]
  - Rheumatoid arthritis [Recovering/Resolving]
  - Pain [Not Recovered/Not Resolved]
  - Pyelonephritis [Unknown]
  - Red blood cell count decreased [Unknown]
  - Dysphonia [Not Recovered/Not Resolved]
  - Leukopenia [Unknown]
  - Somnolence [Unknown]
  - Drug ineffective [Unknown]
  - Fungal infection [Not Recovered/Not Resolved]
  - Joint dislocation [Unknown]
  - Gastritis [Recovering/Resolving]
  - Herpes virus infection [Not Recovered/Not Resolved]
  - Stress [Not Recovered/Not Resolved]
  - Gastritis [Recovering/Resolving]
  - Sinusitis [Unknown]
  - Viral infection [Unknown]
  - Blood cholesterol abnormal [Unknown]
  - Limb injury [Recovered/Resolved]
  - Vitamin D deficiency [Not Recovered/Not Resolved]
  - Immunodeficiency [Not Recovered/Not Resolved]
  - Somnolence [Not Recovered/Not Resolved]
  - Abasia [Recovering/Resolving]

NARRATIVE: CASE EVENT DATE: 2011
